FAERS Safety Report 19064158 (Version 1)
Quarter: 2021Q1

REPORT INFORMATION
  Report Type: Spontaneous
  Country: US (occurrence: US)
  Receive Date: 20210326
  Receipt Date: 20210326
  Transmission Date: 20210420
  Serious: Yes (Hospitalization, Other)
  Sender: FDA-Public Use
  Company Number: US-AMGEN-USASP2021044031

PATIENT
  Age: 74 Year
  Sex: Female
  Weight: 59.05 kg

DRUGS (78)
  1. BLINCYTO [Suspect]
     Active Substance: BLINATUMOMAB
     Dosage: UNK
     Route: 042
     Dates: start: 20201104, end: 20201128
  2. FILGRASTIM [Concomitant]
     Active Substance: FILGRASTIM
     Indication: NEUTROPENIA
     Dosage: 300 MILLIGRAM, QD
     Route: 058
     Dates: start: 20201011, end: 20201012
  3. ACETAMINOPHEN. [Concomitant]
     Active Substance: ACETAMINOPHEN
     Indication: PAIN
     Dosage: 3000 MILLIGRAM, AS NECESSARY
     Route: 048
     Dates: start: 20200929, end: 20201004
  4. ACETAMINOPHEN. [Concomitant]
     Active Substance: ACETAMINOPHEN
     Dosage: 3000 MILLIGRAM, AS NECESSARY
     Route: 048
     Dates: start: 20201024, end: 20201024
  5. ACYCLOVIR [ACICLOVIR] [Concomitant]
     Active Substance: ACYCLOVIR
     Indication: ANTIVIRAL PROPHYLAXIS
     Dosage: 800 MILLIGRAM, Q12H
     Route: 048
     Dates: start: 20201024
  6. LORAZEPAM. [Concomitant]
     Active Substance: LORAZEPAM
     Dosage: 2 MILLIGRAM, AS NECESSARY
     Route: 048
     Dates: start: 20201006, end: 20201006
  7. LACTATED RINGERS SOLUTION [Concomitant]
     Active Substance: CALCIUM CHLORIDE\POTASSIUM CHLORIDE\SODIUM CHLORIDE\SODIUM LACTATE
     Dosage: 1000 MILLILITER
     Dates: start: 20201007, end: 20201007
  8. LACTATED RINGERS SOLUTION [Concomitant]
     Active Substance: CALCIUM CHLORIDE\POTASSIUM CHLORIDE\SODIUM CHLORIDE\SODIUM LACTATE
     Dosage: 1000 MILLILITER
     Dates: start: 20201024, end: 20201024
  9. ONDANSETRON [Concomitant]
     Active Substance: ONDANSETRON
     Indication: VOMITING
     Dosage: ONCE
     Route: 042
     Dates: start: 20201030, end: 20201030
  10. HYDROMORPHONE [Concomitant]
     Active Substance: HYDROMORPHONE
     Indication: DYSPHAGIA
  11. POTASSIUM CHLORIDE. [Concomitant]
     Active Substance: POTASSIUM CHLORIDE
     Indication: PROPHYLAXIS
     Dosage: UNK
     Route: 048
     Dates: start: 20201028, end: 20201028
  12. PROCHLORPERAZINE. [Concomitant]
     Active Substance: PROCHLORPERAZINE
     Indication: VOMITING
  13. CEFEPIME [Concomitant]
     Active Substance: CEFEPIME HYDROCHLORIDE
     Indication: PNEUMONIA
     Dosage: 4 GRAM, Q12H
     Route: 042
     Dates: start: 20201002, end: 20201008
  14. GABAPENTIN. [Concomitant]
     Active Substance: GABAPENTIN
     Indication: NEURALGIA
     Dosage: 200 MILLIGRAM, BID
     Route: 048
     Dates: start: 20201001, end: 20201020
  15. ONDANSETRON [Concomitant]
     Active Substance: ONDANSETRON
     Dosage: 24 MILLIGRAM, Q8H
     Route: 048
     Dates: start: 20201030, end: 20201030
  16. VITAMIN D [COLECALCIFEROL] [Concomitant]
     Active Substance: CHOLECALCIFEROL
     Indication: SUPPLEMENTATION THERAPY
     Dosage: 100 IU, QD
     Route: 048
     Dates: start: 20201025, end: 20201207
  17. CEFTRIAXONE. [Concomitant]
     Active Substance: CEFTRIAXONE
     Indication: URINARY TRACT INFECTION
     Dosage: ONCE
     Route: 042
     Dates: start: 20201024, end: 20201024
  18. CIPROFLOXACIN HYDROCHLORIDE. [Concomitant]
     Active Substance: CIPROFLOXACIN HYDROCHLORIDE
     Indication: URINARY TRACT INFECTION
     Dosage: 500 MILLIGRAM, Q12H
     Route: 048
     Dates: start: 20201026, end: 20201101
  19. GLUCOSE [Concomitant]
     Active Substance: DEXTROSE
     Indication: PRODUCT USED FOR UNKNOWN INDICATION
     Dosage: 5 ML/HR
     Dates: start: 20201007, end: 20201125
  20. PROCHLORPERAZINE. [Concomitant]
     Active Substance: PROCHLORPERAZINE
     Indication: NAUSEA
     Dosage: 40 MILLIGRAM, Q6H
     Route: 042
     Dates: start: 20201006, end: 20201006
  21. CYCLOPHOSPHAMIDE. [Suspect]
     Active Substance: CYCLOPHOSPHAMIDE
     Indication: B-CELL LYMPHOMA
     Dosage: 462 MILLIGRAM, QD
     Route: 042
     Dates: start: 20200130, end: 20200201
  22. LIDOCAINE. [Concomitant]
     Active Substance: LIDOCAINE
     Indication: CATHETER PLACEMENT
     Dosage: 1 DOSAGE FORM, QD
     Dates: start: 20201031
  23. LORAZEPAM. [Concomitant]
     Active Substance: LORAZEPAM
     Dosage: ONCE
     Route: 042
     Dates: start: 20201030, end: 20201030
  24. METRONIDAZOLE. [Concomitant]
     Active Substance: METRONIDAZOLE
     Indication: ABDOMINAL INFECTION
     Dosage: 1500 MILLIGRAM, TID
     Route: 048
     Dates: start: 20201005, end: 20201007
  25. DOCUSATE SODIUM. [Concomitant]
     Active Substance: DOCUSATE SODIUM
     Dosage: 200 MILLIGRAM, AS NECESSARY
     Route: 048
     Dates: start: 20201102, end: 20201105
  26. OXYCODONE [Concomitant]
     Active Substance: OXYCODONE
     Dosage: 20 MILLIGRAM, Q12H
     Route: 048
     Dates: start: 20201101, end: 20201102
  27. BLINCYTO [Suspect]
     Active Substance: BLINATUMOMAB
     Indication: DIFFUSE LARGE B-CELL LYMPHOMA
     Dosage: UNK
     Route: 042
     Dates: start: 20200930, end: 20201006
  28. FILGRASTIM [Concomitant]
     Active Substance: FILGRASTIM
     Dosage: ONCE
     Route: 058
     Dates: start: 20201026, end: 20201026
  29. ACETAMINOPHEN. [Concomitant]
     Active Substance: ACETAMINOPHEN
     Dosage: ONCE
     Route: 048
     Dates: start: 20201026
  30. CEFEPIME [Concomitant]
     Active Substance: CEFEPIME HYDROCHLORIDE
     Dosage: 4 GRAM, Q12H
     Route: 042
     Dates: start: 20201024, end: 20201026
  31. ENOXAPARIN [Concomitant]
     Active Substance: ENOXAPARIN
     Indication: NEURALGIA
     Dosage: 40 MILLIGRAM, QD
     Route: 058
     Dates: start: 20200929, end: 20201019
  32. GABAPENTIN. [Concomitant]
     Active Substance: GABAPENTIN
     Dosage: 300 MILLIGRAM, TID
     Route: 048
     Dates: start: 20201025, end: 20201027
  33. LACTATED RINGERS SOLUTION [Concomitant]
     Active Substance: CALCIUM CHLORIDE\POTASSIUM CHLORIDE\SODIUM CHLORIDE\SODIUM LACTATE
     Indication: BLOOD LACTIC ACID INCREASED
     Dosage: 1000 MILLILITER
     Dates: start: 20201006, end: 20201006
  34. CALCIUM CARBONATE. [Concomitant]
     Active Substance: CALCIUM CARBONATE
     Dosage: 1500 MILLIGRAM, TID
     Route: 048
     Dates: start: 20201027, end: 20201101
  35. HYDROMORPHONE [Concomitant]
     Active Substance: HYDROMORPHONE
     Indication: VOMITING
  36. LORATADINE. [Concomitant]
     Active Substance: LORATADINE
     Dosage: ONCE
     Route: 048
     Dates: start: 20201029, end: 20201029
  37. OXYCODONE [Concomitant]
     Active Substance: OXYCODONE
     Indication: PAIN
     Dosage: 5 MILLIGRAM, AS NECESSARY
     Route: 048
     Dates: start: 20201031, end: 20201031
  38. ACETAMINOPHEN. [Concomitant]
     Active Substance: ACETAMINOPHEN
     Indication: HEADACHE
     Dosage: 3900 MILLIGRAM, AS NECESSARY
     Route: 048
     Dates: start: 20201004, end: 20201017
  39. GABAPENTIN. [Concomitant]
     Active Substance: GABAPENTIN
     Dosage: 300 MILLIGRAM, QD
     Route: 048
     Dates: start: 20201024, end: 20201206
  40. LACTATED RINGERS SOLUTION [Concomitant]
     Active Substance: CALCIUM CHLORIDE\POTASSIUM CHLORIDE\SODIUM CHLORIDE\SODIUM LACTATE
     Indication: PROPHYLAXIS
     Dosage: 1000 MILLILITER
     Dates: start: 20201004, end: 20201004
  41. PHOSPHORUS [Concomitant]
     Active Substance: PHOSPHORUS
     Indication: BLOOD PHOSPHORUS DECREASED
     Dosage: 500 MILLIGRAM, BID
     Route: 048
     Dates: start: 20201024, end: 20201024
  42. VANCOMYCIN [Concomitant]
     Active Substance: VANCOMYCIN
     Indication: INFECTION
     Dosage: 2000 MILLIGRAM, Q12H
     Route: 042
     Dates: start: 20201025, end: 20201027
  43. BLINCYTO [Suspect]
     Active Substance: BLINATUMOMAB
     Dosage: UNK
     Route: 042
     Dates: start: 20201014, end: 20201103
  44. FLUDARABINE [Suspect]
     Active Substance: FLUDARABINE PHOSPHATE
     Indication: B-CELL LYMPHOMA
     Dosage: 37 MILLIGRAM, QD
     Route: 042
     Dates: start: 20200130, end: 20200201
  45. FILGRASTIM [Concomitant]
     Active Substance: FILGRASTIM
     Dosage: ONCE
     Route: 058
     Dates: start: 20201029, end: 20201029
  46. ACETAMINOPHEN. [Concomitant]
     Active Substance: ACETAMINOPHEN
     Indication: PYREXIA
     Dosage: 2925 MILLIGRAM, AS NECESSARY
     Route: 048
     Dates: start: 20201004, end: 20201012
  47. LORAZEPAM. [Concomitant]
     Active Substance: LORAZEPAM
     Indication: NAUSEA
     Dosage: 0.5 MILLIGRAM, QD
     Route: 048
     Dates: start: 20201005, end: 20201005
  48. PANTOPRAZOLE [Concomitant]
     Active Substance: PANTOPRAZOLE
     Indication: GASTROOESOPHAGEAL REFLUX PROPHYLAXIS
     Dosage: 40 MILLIGRAM, QD
     Route: 048
     Dates: start: 20200930, end: 20201020
  49. VITAMIN D [COLECALCIFEROL] [Concomitant]
     Active Substance: CHOLECALCIFEROL
     Indication: VOMITING
     Dosage: 100 IU, QD
     Route: 048
     Dates: start: 20200930, end: 20201020
  50. LORATADINE. [Concomitant]
     Active Substance: LORATADINE
     Indication: PREMEDICATION
     Dosage: 10 MILLIGRAM, QD
     Route: 048
     Dates: start: 20201026, end: 20201026
  51. LORATADINE. [Concomitant]
     Active Substance: LORATADINE
     Dosage: ONCE
     Route: 048
     Dates: start: 20201030, end: 20201030
  52. MAGNESIUM SULFATE. [Concomitant]
     Active Substance: MAGNESIUM SULFATE
     Indication: PROPHYLAXIS
     Dosage: UNK
     Route: 042
     Dates: start: 20201026, end: 20201206
  53. BLINCYTO [Suspect]
     Active Substance: BLINATUMOMAB
     Dosage: UNK
     Route: 042
     Dates: start: 20201007, end: 20201013
  54. SIMETHICONE (DIMETHICONE) [Concomitant]
     Active Substance: DIMETHICONE
     Indication: DYSPEPSIA
     Dosage: 160 MILLIGRAM, QID
     Route: 048
     Dates: start: 20201017, end: 20201017
  55. SIMETHICONE (DIMETHICONE) [Concomitant]
     Active Substance: DIMETHICONE
     Indication: ABDOMINAL PAIN
     Dosage: 15?30 ML, 4 IN 1 D
     Route: 048
     Dates: start: 20201025, end: 20201102
  56. ATOVAQUONE. [Concomitant]
     Active Substance: ATOVAQUONE
     Indication: INFECTION PROPHYLAXIS
     Dosage: 1500 MILLIGRAM, QD
     Route: 048
     Dates: start: 20200929, end: 20201020
  57. GABAPENTIN. [Concomitant]
     Active Substance: GABAPENTIN
     Dosage: 200 MILLIGRAM, BID
     Route: 048
     Dates: start: 20201024, end: 20201207
  58. LIDOCAINE. [Concomitant]
     Active Substance: LIDOCAINE
     Indication: BACK PAIN
     Dosage: 5 MILLILITER, QD
     Route: 058
     Dates: start: 20201030, end: 20201030
  59. LOPERAMIDE [Concomitant]
     Active Substance: LOPERAMIDE
     Indication: DIARRHOEA
     Dosage: 8 MILLIGRAM, AS NECESSARY
     Route: 048
     Dates: start: 20201005, end: 20201017
  60. PANTOPRAZOLE [Concomitant]
     Active Substance: PANTOPRAZOLE
     Dosage: 40 MILLIGRAM, QD
     Route: 048
     Dates: start: 20201024
  61. CALCIUM CARBONATE. [Concomitant]
     Active Substance: CALCIUM CARBONATE
     Dosage: UNK, ONCE
     Route: 048
     Dates: start: 20201024, end: 20201024
  62. POLYETHYLENE GLYCOL [MACROGOL] [Concomitant]
     Active Substance: POLYETHYLENE GLYCOLS
     Indication: CONSTIPATION
     Dosage: 17 GRAM, QD
     Route: 048
     Dates: start: 20201102, end: 20201104
  63. TRAMADOL. [Concomitant]
     Active Substance: TRAMADOL
     Indication: PAIN
     Dosage: 40 MILLIGRAM, Q6H
     Route: 048
     Dates: start: 20201011, end: 20201011
  64. KEPPRA [Concomitant]
     Active Substance: LEVETIRACETAM
     Indication: SEIZURE PROPHYLAXIS
     Dosage: UNK
  65. ACETAMINOPHEN. [Concomitant]
     Active Substance: ACETAMINOPHEN
     Dosage: 3900 MILLIGRAM, AS NECESSARY
     Route: 048
     Dates: start: 20201006, end: 20201006
  66. SIMETHICONE (DIMETHICONE) [Concomitant]
     Active Substance: DIMETHICONE
     Indication: GASTROOESOPHAGEAL REFLUX DISEASE
     Dosage: 15?30 ML, AS NECESSARY
     Route: 048
     Dates: start: 20201004, end: 20201016
  67. GABAPENTIN. [Concomitant]
     Active Substance: GABAPENTIN
     Dosage: 300 MILLIGRAM, QD
     Route: 048
     Dates: start: 20201001, end: 20201019
  68. LATANOPROST. [Concomitant]
     Active Substance: LATANOPROST
     Indication: DRY EYE
     Dosage: UNK UNK, QD
     Dates: start: 20201024
  69. LIDOCAINE. [Concomitant]
     Active Substance: LIDOCAINE
     Dosage: 1 DOSAGE FORM, Q12H
     Route: 065
     Dates: start: 20201028, end: 20201112
  70. LACTATED RINGERS SOLUTION [Concomitant]
     Active Substance: CALCIUM CHLORIDE\POTASSIUM CHLORIDE\SODIUM CHLORIDE\SODIUM LACTATE
     Indication: DECREASED APPETITE
     Dosage: 100 ML/HR, QD
     Route: 042
     Dates: start: 20201005, end: 20201006
  71. LACTATED RINGERS SOLUTION [Concomitant]
     Active Substance: CALCIUM CHLORIDE\POTASSIUM CHLORIDE\SODIUM CHLORIDE\SODIUM LACTATE
     Dosage: ONCE, UNK
     Dates: start: 20201103, end: 20201103
  72. ONDANSETRON [Concomitant]
     Active Substance: ONDANSETRON
     Indication: NAUSEA
     Dosage: 24 MILLIGRAM, AS NECESSARY
     Route: 042
     Dates: start: 20201005, end: 20201101
  73. ALTEPLASE. [Concomitant]
     Active Substance: ALTEPLASE
     Indication: CATHETER MANAGEMENT
     Dosage: 1MG/5ML, ONCE
     Route: 042
     Dates: start: 20201013, end: 20201013
  74. CALCIUM CARBONATE. [Concomitant]
     Active Substance: CALCIUM CARBONATE
     Indication: GASTROOESOPHAGEAL REFLUX DISEASE
     Dosage: 4000 MILLIGRAM, QID
     Route: 048
     Dates: start: 20201011, end: 20201019
  75. DOCUSATE SODIUM. [Concomitant]
     Active Substance: DOCUSATE SODIUM
     Indication: CONSTIPATION
     Dosage: 400 MILLIGRAM, AS NECESSARY
     Route: 048
     Dates: start: 20201012, end: 20201012
  76. HYDROMORPHONE [Concomitant]
     Active Substance: HYDROMORPHONE
     Indication: NAUSEA
     Dosage: ONCE
     Route: 042
     Dates: start: 20201007, end: 20201007
  77. OLANZAPINE. [Concomitant]
     Active Substance: OLANZAPINE
     Indication: NAUSEA
     Dosage: 10 MILLIGRAM, BID
     Route: 048
     Dates: start: 20201007, end: 20201007
  78. OXYCODONE [Concomitant]
     Active Substance: OXYCODONE
     Dosage: 10 MILLIGRAM, QD
     Route: 048
     Dates: start: 20201101, end: 20201101

REACTIONS (9)
  - Neurotoxicity [Recovered/Resolved]
  - Cytokine release syndrome [Recovered/Resolved]
  - Memory impairment [Recovered/Resolved]
  - Palpitations [Unknown]
  - Vomiting [Unknown]
  - Dizziness [Unknown]
  - Encephalopathy [Recovered/Resolved]
  - Abdominal pain [Unknown]
  - Nausea [Unknown]

NARRATIVE: CASE EVENT DATE: 2020
